FAERS Safety Report 12129998 (Version 1)
Quarter: 2016Q1

REPORT INFORMATION
  Report Type: Spontaneous
  Country: US (occurrence: US)
  Receive Date: 20160229
  Receipt Date: 20160229
  Transmission Date: 20160526
  Serious: No
  Sender: FDA-Public Use
  Company Number: US-ACORDA-ACO_23222_2010

PATIENT
  Age: 59 Year
  Sex: Female
  Weight: 54 kg

DRUGS (6)
  1. TINDAMAX PULSE THERAPY [Concomitant]
     Dosage: DF
  2. AZITHROMYCIN ANHYDROUS. [Concomitant]
     Active Substance: AZITHROMYCIN ANHYDROUS
     Dosage: DF
  3. AMPYRA [Suspect]
     Active Substance: DALFAMPRIDINE
     Indication: GAIT DISTURBANCE
  4. AMPYRA [Suspect]
     Active Substance: DALFAMPRIDINE
     Indication: MULTIPLE SCLEROSIS
     Dosage: 10 MG Q 12 HRS
     Route: 048
     Dates: start: 20100509
  5. DOXYCYCLINE. [Concomitant]
     Active Substance: DOXYCYCLINE
     Dosage: DF
  6. FLAGYL PULSE THERAPY [Concomitant]
     Dosage: DF

REACTIONS (8)
  - Paraesthesia [Recovered/Resolved]
  - Dizziness [Recovered/Resolved]
  - Asthenia [Recovered/Resolved]
  - Adverse drug reaction [Unknown]
  - Muscle twitching [Recovered/Resolved]
  - Fatigue [Recovered/Resolved]
  - Chills [Recovered/Resolved]
  - Nausea [Recovered/Resolved]

NARRATIVE: CASE EVENT DATE: 20100521
